FAERS Safety Report 10419729 (Version 2)
Quarter: 2014Q4

REPORT INFORMATION
  Report Type: Spontaneous
  Country: US (occurrence: US)
  Receive Date: 20140829
  Receipt Date: 20141123
  Transmission Date: 20150528
  Serious: Yes (Other)
  Sender: FDA-Public Use
  Company Number: US-BRISTOL-MYERS SQUIBB COMPANY-21321138

PATIENT
  Age: 57 Year
  Sex: Female
  Weight: 134.69 kg

DRUGS (4)
  1. BYETTA [Suspect]
     Active Substance: EXENATIDE
     Indication: TYPE 2 DIABETES MELLITUS
     Route: 058
     Dates: end: 2007
  2. LANTUS [Concomitant]
     Active Substance: INSULIN GLARGINE
  3. HUMALOG [Concomitant]
     Active Substance: INSULIN LISPRO
  4. SYMLINPEN [Suspect]
     Active Substance: PRAMLINTIDE ACETATE
     Indication: TYPE 2 DIABETES MELLITUS
     Dosage: 1 DF=SYMLIN 120 NO UNITS
     Route: 058
     Dates: start: 2008, end: 201407

REACTIONS (2)
  - Adenocarcinoma pancreas [Unknown]
  - Weight decreased [Unknown]

NARRATIVE: CASE EVENT DATE: 201407
